FAERS Safety Report 10206580 (Version 9)
Quarter: 2014Q3

REPORT INFORMATION
  Report Type: Spontaneous
  Country: US (occurrence: US)
  Receive Date: 20140530
  Receipt Date: 20140827
  Transmission Date: 20150326
  Serious: Yes (Hospitalization)
  Sender: FDA-Public Use
  Company Number: US-GLAXOSMITHKLINE-A1044652A

PATIENT
  Age: 48 Year
  Sex: Male

DRUGS (3)
  1. COUMADIN [Concomitant]
     Active Substance: WARFARIN SODIUM
  2. VELETRI [Suspect]
     Active Substance: EPOPROSTENOL
     Indication: PULMONARY ARTERIAL HYPERTENSION
  3. FLOLAN [Suspect]
     Active Substance: EPOPROSTENOL SODIUM
     Indication: PULMONARY ARTERIAL HYPERTENSION
     Dosage: 28NGKM CONTINUOUS
     Route: 042
     Dates: start: 20020324

REACTIONS (12)
  - Presyncope [Recovered/Resolved]
  - Haematocrit decreased [Recovered/Resolved]
  - Melaena [Recovered/Resolved]
  - Tachycardia [Recovered/Resolved]
  - Haemorrhage [Recovered/Resolved]
  - Palpitations [Recovered/Resolved]
  - Chest pain [Recovered/Resolved]
  - Heart rate increased [Recovered/Resolved]
  - Gastrointestinal haemorrhage [Recovered/Resolved]
  - Investigation [Recovered/Resolved]
  - Headache [Recovered/Resolved]
  - Dyspnoea [Recovered/Resolved]

NARRATIVE: CASE EVENT DATE: 201407
